FAERS Safety Report 24901005 (Version 6)
Quarter: 2025Q4

REPORT INFORMATION
  Report Type: Spontaneous
  Country: US (occurrence: US)
  Receive Date: 20250129
  Receipt Date: 20251013
  Transmission Date: 20260118
  Serious: Yes (Hospitalization)
  Sender: PFIZER
  Company Number: US-PFIZER INC-202500017311

PATIENT
  Age: 75 Year
  Sex: Female

DRUGS (2)
  1. IBRANCE [Suspect]
     Active Substance: PALBOCICLIB
     Dosage: 125 MG (TAKE 1 TABLET 1-21DAYS AND THEN 7 DAYS OFF)
     Route: 048
  2. ALPRAZOLAM [Concomitant]
     Active Substance: ALPRAZOLAM
     Dosage: AS NEEDED AT BEDTIME

REACTIONS (5)
  - Hernia [Unknown]
  - Oesophageal disorder [Unknown]
  - Fall [Unknown]
  - Malaise [Unknown]
  - Vomiting [Unknown]
